FAERS Safety Report 7553470-4 (Version None)
Quarter: 2011Q2

REPORT INFORMATION
  Report Type: 
  Country: None (occurrence: None)
  Receive Date: 20110617
  Receipt Date: 20110603
  Transmission Date: 20111010
  Serious: Yes (Other)
  Sender: FDA-Public Use
  Company Number: US-BAYER-201039599NA

PATIENT
  Age: 57 Year
  Sex: Male
  Weight: 77.098 kg

DRUGS (38)
  1. TRASYLOL [Suspect]
     Dosage: UNK
     Route: 042
     Dates: start: 20070918
  2. METOLAZONE [Concomitant]
     Indication: PRODUCT USED FOR UNKNOWN INDICATION
     Dosage: 5 MG, QD
  3. TRAMADOL HCL [Concomitant]
     Indication: PRODUCT USED FOR UNKNOWN INDICATION
     Dosage: 50 MG Q4-6HR
     Route: 048
  4. PHOSLO [Concomitant]
     Indication: PRODUCT USED FOR UNKNOWN INDICATION
     Dosage: 2 DF BEFORE MEALS, UNK
     Route: 048
     Dates: start: 20070910
  5. LASIX [Concomitant]
     Indication: PRODUCT USED FOR UNKNOWN INDICATION
     Dosage: 80 MG, QD
     Route: 048
  6. CALCIUM CARBONATE [Concomitant]
     Indication: PRODUCT USED FOR UNKNOWN INDICATION
     Dosage: 1250 MG, QID
     Route: 048
  7. MINOXIDIL [Concomitant]
     Indication: PRODUCT USED FOR UNKNOWN INDICATION
     Dosage: 2.5 MG, QD
     Route: 048
     Dates: start: 20070909
  8. VENOFER [Concomitant]
     Indication: PRODUCT USED FOR UNKNOWN INDICATION
     Dosage: 200 MG, TIW AFTER DIALYSIS
     Route: 042
     Dates: start: 20070914
  9. MANNITOL [Concomitant]
     Dosage: 50 ML, UNK
     Route: 042
     Dates: start: 20070918, end: 20070918
  10. CEFAZOLIN [Concomitant]
     Indication: PRODUCT USED FOR UNKNOWN INDICATION
     Dosage: 2 G IRRIGATION, UNK
     Dates: start: 20070918, end: 20070918
  11. CRESTOR [Concomitant]
     Indication: PRODUCT USED FOR UNKNOWN INDICATION
     Dosage: 30 MG, QD
     Route: 048
  12. PROTONIX [Concomitant]
     Indication: PRODUCT USED FOR UNKNOWN INDICATION
     Dosage: 40 MG, QD
     Route: 048
  13. PROTAMINE SULFATE [Concomitant]
     Indication: PRODUCT USED FOR UNKNOWN INDICATION
     Dosage: 230 MG, UNK
     Route: 042
     Dates: start: 20070918, end: 20070918
  14. VERSED [Concomitant]
     Indication: PRODUCT USED FOR UNKNOWN INDICATION
     Dosage: UNK
     Route: 042
     Dates: start: 20070918, end: 20070918
  15. ANCEF [Concomitant]
     Indication: PRODUCT USED FOR UNKNOWN INDICATION
     Dosage: UNK
     Route: 042
     Dates: start: 20070918, end: 20070918
  16. TRASYLOL [Suspect]
     Indication: CORONARY ARTERY BYPASS
     Dosage: UNK
     Route: 042
     Dates: start: 20070201
  17. TOPROL-XL [Concomitant]
     Indication: PRODUCT USED FOR UNKNOWN INDICATION
     Dosage: 50 MG, QD
     Route: 048
     Dates: start: 20070909
  18. MANNITOL [Concomitant]
     Indication: PRODUCT USED FOR UNKNOWN INDICATION
     Dosage: 100 ML PUMP PRIME, UNK
     Dates: start: 20070918, end: 20070918
  19. HEPARIN [Concomitant]
     Dosage: 37000 U, UNK
     Route: 042
     Dates: start: 20070918, end: 20070918
  20. HEPARIN [Concomitant]
     Dosage: 10 ML PUMP, UNK
     Dates: start: 20070918, end: 20070918
  21. MAGNESIUM SULFATE [Concomitant]
     Indication: PRODUCT USED FOR UNKNOWN INDICATION
     Dosage: 2 ML, UNK
     Route: 042
     Dates: start: 20070918, end: 20070918
  22. BACITRACIN [Concomitant]
     Indication: PRODUCT USED FOR UNKNOWN INDICATION
     Dosage: 10 G, UNK
     Route: 062
     Dates: start: 20070918, end: 20070918
  23. HYDRALAZINE HCL [Concomitant]
     Indication: PRODUCT USED FOR UNKNOWN INDICATION
     Dosage: 25 MG/ 4 TID
     Route: 048
  24. NAPROSYN [Concomitant]
     Indication: PRODUCT USED FOR UNKNOWN INDICATION
     Dosage: UNK UNK, PRN
  25. BLOOD AND RELATED PRODUCTS [Concomitant]
     Indication: PRODUCT USED FOR UNKNOWN INDICATION
     Dosage: 940 ML, UNK
     Route: 042
     Dates: start: 20070918, end: 20070918
  26. FORANE [Concomitant]
     Indication: PRODUCT USED FOR UNKNOWN INDICATION
     Dosage: UNK
     Route: 042
     Dates: start: 20070918, end: 20070918
  27. CLONIDINE [Concomitant]
     Indication: PRODUCT USED FOR UNKNOWN INDICATION
     Dosage: 0.1 MG, BID
     Route: 048
     Dates: start: 20070909
  28. PAPAVERINE HCL [Concomitant]
     Indication: PRODUCT USED FOR UNKNOWN INDICATION
     Dosage: 10 ML, UNK
     Route: 042
     Dates: start: 20070918, end: 20070918
  29. ROCALTROL [Concomitant]
     Indication: PRODUCT USED FOR UNKNOWN INDICATION
     Dosage: 0.25 MCG BID
     Route: 048
  30. RED BLOOD CELLS, CONCENTRATED [Concomitant]
     Indication: PRODUCT USED FOR UNKNOWN INDICATION
     Dosage: 600 ML, UNK
     Route: 042
     Dates: start: 20070918, end: 20070918
  31. PLASMALYTE [GLUCOSE,POTASSIUM CHLORIDE] [Concomitant]
     Indication: PRODUCT USED FOR UNKNOWN INDICATION
     Dosage: 800 ML PUMP PRIME, UNK
     Dates: start: 20070918, end: 20070918
  32. HEPARIN [Concomitant]
     Indication: PRODUCT USED FOR UNKNOWN INDICATION
     Dosage: 10 ML PUMP, UNK
     Dates: start: 20070918, end: 20070918
  33. HEPARIN [Concomitant]
     Dosage: 8 ML IRRIGATION, UNK
     Dates: start: 20070918, end: 20070918
  34. SODIUM BICARBONATE [Concomitant]
     Indication: PRODUCT USED FOR UNKNOWN INDICATION
     Dosage: 50 ML, UNK
     Route: 042
     Dates: start: 20070918, end: 20070918
  35. ACETYLSALICYLIC ACID SRT [Concomitant]
     Indication: PRODUCT USED FOR UNKNOWN INDICATION
     Dosage: 81 MG, QD
     Route: 048
  36. DILTIAZEM [Concomitant]
     Indication: PRODUCT USED FOR UNKNOWN INDICATION
     Dosage: 240 MG, QD
     Route: 048
     Dates: start: 20070909
  37. HEXTEND [Concomitant]
     Indication: PRODUCT USED FOR UNKNOWN INDICATION
     Dosage: 500 ML PUMP PRIME, UNK
     Dates: start: 20070918, end: 20070918
  38. CALCIUM CHLORIDE [Concomitant]
     Indication: PRODUCT USED FOR UNKNOWN INDICATION
     Dosage: 10 ML, UNK
     Route: 042
     Dates: start: 20070918, end: 20070918

REACTIONS (15)
  - EMOTIONAL DISTRESS [None]
  - NERVOUSNESS [None]
  - PSYCHIATRIC SYMPTOM [None]
  - RENAL INJURY [None]
  - PAIN [None]
  - ANHEDONIA [None]
  - DISABILITY [None]
  - MULTI-ORGAN FAILURE [None]
  - DEPRESSION [None]
  - FEAR [None]
  - UNEVALUABLE EVENT [None]
  - RENAL FAILURE [None]
  - INJURY [None]
  - ANXIETY [None]
  - FEAR OF DEATH [None]
